FAERS Safety Report 19765488 (Version 1)
Quarter: 2021Q3

REPORT INFORMATION
  Report Type: Spontaneous
  Country: GB (occurrence: GB)
  Receive Date: 20210831
  Receipt Date: 20210831
  Transmission Date: 20211014
  Serious: Yes (Other)
  Sender: FDA-Public Use
  Company Number: NVSC2021GB192673

PATIENT
  Age: 68 Year
  Sex: Male
  Weight: 111 kg

DRUGS (11)
  1. ENTRESTO [Suspect]
     Active Substance: SACUBITRIL\VALSARTAN
     Indication: ILL-DEFINED DISORDER
     Dosage: UNK
     Route: 048
     Dates: start: 20210805, end: 20210816
  2. SACUBITRIL [Concomitant]
     Active Substance: SACUBITRIL
     Indication: ILL-DEFINED DISORDER
     Dosage: 1 DF, BID
     Route: 065
     Dates: start: 20210806
  3. APIXABAN [Concomitant]
     Active Substance: APIXABAN
     Indication: ILL-DEFINED DISORDER
     Dosage: 1 DF, BID
     Route: 065
     Dates: start: 20210406
  4. CLOPIDOGREL [Concomitant]
     Active Substance: CLOPIDOGREL BISULFATE
     Indication: ILL-DEFINED DISORDER
     Dosage: 1 DF (TAKE ONE DAILY)
     Route: 065
     Dates: start: 20210628
  5. BISOPROLOL [Concomitant]
     Active Substance: BISOPROLOL
     Indication: ILL-DEFINED DISORDER
     Dosage: UNK, QD (MORNING)
     Route: 065
     Dates: start: 20210610
  6. RAMIPRIL. [Concomitant]
     Active Substance: RAMIPRIL
     Indication: ILL-DEFINED DISORDER
     Dosage: 1 DF
     Route: 065
     Dates: start: 20210406
  7. MACROGOL [Concomitant]
     Active Substance: POLYETHYLENE GLYCOLS
     Indication: ILL-DEFINED DISORDER
     Dosage: ONE SACHET TWICE DAILY AS REQUIRED
     Route: 065
     Dates: start: 20210406
  8. SPIRONOLACTONE. [Concomitant]
     Active Substance: SPIRONOLACTONE
     Indication: ILL-DEFINED DISORDER
     Dosage: 1 DF (DAILY)
     Route: 065
     Dates: start: 20210406
  9. AMIODARONE [Concomitant]
     Active Substance: AMIODARONE
     Indication: ILL-DEFINED DISORDER
     Dosage: 1 DF, QD (TO CONTROL HEART RHYTHM (SIX MON...)
     Route: 065
     Dates: start: 20210406
  10. ATORVASTATIN [Concomitant]
     Active Substance: ATORVASTATIN
     Indication: ILL-DEFINED DISORDER
     Dosage: 1 DF (TAKE ONE DAILY)
     Route: 065
     Dates: start: 20210406
  11. LANSOPRAZOLE. [Concomitant]
     Active Substance: LANSOPRAZOLE
     Indication: ILL-DEFINED DISORDER
     Dosage: 1 DF (DAILY)
     Route: 065
     Dates: start: 20210628

REACTIONS (1)
  - Urticaria [Recovering/Resolving]

NARRATIVE: CASE EVENT DATE: 20210816
